FAERS Safety Report 14985586 (Version 2)
Quarter: 2018Q2

REPORT INFORMATION
  Report Type: Spontaneous
  Country: US (occurrence: US)
  Receive Date: 20180607
  Receipt Date: 20180625
  Transmission Date: 20180711
  Serious: No
  Sender: FDA-Public Use
  Company Number: US-SUNOVION-2018SUN002290

PATIENT
  Sex: Female

DRUGS (3)
  1. LATUDA [Suspect]
     Active Substance: LURASIDONE HYDROCHLORIDE
     Route: 048
  2. KLONOPIN [Concomitant]
     Active Substance: CLONAZEPAM
  3. VYVANSE [Concomitant]
     Active Substance: LISDEXAMFETAMINE DIMESYLATE

REACTIONS (8)
  - Nightmare [Unknown]
  - Insomnia [Unknown]
  - Drug screen false positive [Unknown]
  - Muscle tightness [Unknown]
  - Abnormal dreams [Unknown]
  - Musculoskeletal stiffness [Unknown]
  - Pain [Unknown]
  - Myalgia [Unknown]
